FAERS Safety Report 8495064-2 (Version None)
Quarter: 2012Q3

REPORT INFORMATION
  Report Type: 
  Country: None (occurrence: None)
  Receive Date: 20120709
  Receipt Date: 20120702
  Transmission Date: 20120928
  Serious: Yes (Other)
  Sender: FDA-Public Use
  Company Number: US-JNJFOC-20120508439

PATIENT
  Sex: Male
  Weight: 75.3 kg

DRUGS (10)
  1. REYATAZ [Suspect]
     Indication: HIV INFECTION
     Route: 065
     Dates: start: 20120415, end: 20120503
  2. NORVIR [Suspect]
     Indication: HIV INFECTION
     Route: 065
  3. ABACAVIR [Suspect]
     Indication: HIV INFECTION
     Route: 065
     Dates: end: 20120415
  4. PREZISTA [Suspect]
     Indication: HIV INFECTION
     Route: 048
  5. INTELENCE [Suspect]
     Indication: HIV INFECTION
     Route: 065
  6. REYATAZ [Suspect]
     Indication: MULTIPLE-DRUG RESISTANCE
     Route: 065
     Dates: start: 20120415, end: 20120503
  7. NORVIR [Suspect]
     Route: 065
  8. ISENTRESS [Suspect]
     Indication: HIV INFECTION
     Route: 065
  9. NORVIR [Suspect]
     Route: 065
  10. LAMIVUDINE [Suspect]
     Indication: HIV INFECTION
     Route: 065
     Dates: start: 20120415

REACTIONS (3)
  - VIROLOGIC FAILURE [None]
  - FATIGUE [None]
  - JAUNDICE [None]
